FAERS Safety Report 9191022 (Version 1)
Quarter: 2013Q1

REPORT INFORMATION
  Report Type: Spontaneous
  Country: ES (occurrence: ES)
  Receive Date: 20130326
  Receipt Date: 20130326
  Transmission Date: 20140127
  Serious: Yes (Hospitalization)
  Sender: FDA-Public Use
  Company Number: ES-ELI_LILLY_AND_COMPANY-ES201303008546

PATIENT
  Sex: Male
  Weight: 92 kg

DRUGS (7)
  1. FORSTEO [Suspect]
     Indication: OSTEOPOROSIS
     Dosage: 20 UG, QD
     Route: 058
     Dates: start: 20110709
  2. CARDYL [Concomitant]
     Indication: BLOOD CHOLESTEROL ABNORMAL
     Dosage: UNK, QD
     Route: 048
  3. ARCOXIA [Concomitant]
     Indication: PAIN
     Dosage: UNK, QD
     Route: 048
  4. LYRICA [Concomitant]
     Indication: PAIN
     Dosage: UNK, QD
     Route: 048
  5. ALLOPURINOL [Concomitant]
     Indication: BLOOD URIC ACID ABNORMAL
     Dosage: UNK, QD
     Route: 048
  6. ADIRO [Concomitant]
     Indication: ANGIOPATHY
     Dosage: UNK, QD
     Route: 048
  7. SYMBICORT [Concomitant]
     Indication: CHRONIC OBSTRUCTIVE PULMONARY DISEASE
     Dosage: UNK, QD
     Route: 055

REACTIONS (2)
  - Psoriasis [Recovering/Resolving]
  - Haemorrhoids [Unknown]
